FAERS Safety Report 18701537 (Version 2)
Quarter: 2021Q1

REPORT INFORMATION
  Report Type: Spontaneous
  Country: US (occurrence: US)
  Receive Date: 20210105
  Receipt Date: 20210210
  Transmission Date: 20210419
  Serious: Yes (Other)
  Sender: FDA-Public Use
  Company Number: US-PFIZER INC-2020520024

PATIENT
  Age: 91 Year
  Sex: Male
  Weight: 77.56 kg

DRUGS (5)
  1. LATANOPROST. [Suspect]
     Active Substance: LATANOPROST
     Indication: GLAUCOMA
     Dosage: 2 DROP, 1X/DAY (.005%; 125MCG/5ML; 2.5ML; 1 DROP IN BOTH EYES AT BEDTIME)
     Route: 047
  2. MURO 128 [Concomitant]
     Active Substance: SODIUM CHLORIDE
     Indication: SENSATION OF FOREIGN BODY
     Dosage: UNK UNK, 2X/DAY (TWICE A DAY; UNKNOWN DOSE)
     Dates: start: 202008
  3. PREDNISOLONE. [Concomitant]
     Active Substance: PREDNISOLONE
     Indication: SUPERFICIAL INJURY OF EYE
     Dosage: 1 DROP (ONE DROP IN THE LEFT EYE)
     Route: 047
     Dates: start: 20200831
  4. SIMBRINZA [Concomitant]
     Active Substance: BRIMONIDINE TARTRATE\BRINZOLAMIDE
     Indication: GLAUCOMA
     Dosage: 2 DROP, 2X/DAY (1%; 1 DROP INTO EACH EYE TWICE PER DAY)
     Route: 047
     Dates: start: 2018
  5. TIMOLOL. [Concomitant]
     Active Substance: TIMOLOL
     Indication: GLAUCOMA
     Dosage: 2 DROP, 2X/DAY (0.5%; 1 DROP IN BOTH EYES TWICE PER DAY)
     Route: 047

REACTIONS (4)
  - Eye pruritus [Not Recovered/Not Resolved]
  - Corneal disorder [Unknown]
  - Eye pain [Not Recovered/Not Resolved]
  - Vision blurred [Not Recovered/Not Resolved]
